FAERS Safety Report 13721318 (Version 1)
Quarter: 2017Q3

REPORT INFORMATION
  Report Type: Spontaneous
  Country: US (occurrence: US)
  Receive Date: 20170705
  Receipt Date: 20170705
  Transmission Date: 20171127
  Serious: Yes (Life-Threatening)
  Sender: FDA-Public Use
  Company Number: None

PATIENT
  Age: 54 Year
  Sex: Female
  Weight: 65 kg

DRUGS (1)
  1. OBETICHOLIC ACID [Suspect]
     Active Substance: OBETICHOLIC ACID
     Indication: BILIARY CIRRHOSIS PRIMARY
     Dosage: ?          OTHER DOSE:MG;?
     Route: 048
     Dates: start: 20161116, end: 20170206

REACTIONS (5)
  - Ascites [None]
  - Liver transplant [None]
  - Jaundice [None]
  - Condition aggravated [None]
  - Pruritus [None]

NARRATIVE: CASE EVENT DATE: 20170206
